FAERS Safety Report 24145578 (Version 1)
Quarter: 2024Q3

REPORT INFORMATION
  Report Type: Spontaneous
  Country: PT (occurrence: PT)
  Receive Date: 20240729
  Receipt Date: 20240729
  Transmission Date: 20241017
  Serious: Yes (Disabling)
  Sender: MENARINI
  Company Number: None

PATIENT
  Age: 51 Year
  Sex: Female

DRUGS (6)
  1. RANEXA [Suspect]
     Active Substance: RANOLAZINE
     Indication: Prinzmetal angina
     Dosage: 1000 MG, QD
     Route: 048
     Dates: start: 202305, end: 202402
  2. CLOPIDOGREL [Concomitant]
     Active Substance: CLOPIDOGREL BISULFATE
  3. ISOPTIN [Concomitant]
     Active Substance: VERAPAMIL HYDROCHLORIDE
     Indication: Prinzmetal angina
     Dosage: 40 MG
     Route: 048
  4. LYRICA [Concomitant]
     Active Substance: PREGABALIN
     Dosage: 75 MG
     Route: 048
  5. CYCLOBENZAPRINE [Concomitant]
     Active Substance: CYCLOBENZAPRINE
     Dosage: 10 MG
     Route: 048
  6. ATORVASTATIN [Concomitant]
     Active Substance: ATORVASTATIN
     Route: 065

REACTIONS (9)
  - Vision blurred [Recovered/Resolved]
  - Tenosynovitis [Recovering/Resolving]
  - Epistaxis [Recovered/Resolved]
  - Dehydration [Recovered/Resolved]
  - Plantar fasciitis [Recovering/Resolving]
  - Taste disorder [Recovered/Resolved]
  - Weight decreased [Recovered/Resolved]
  - Pain in extremity [Recovering/Resolving]
  - Gait inability [Unknown]

NARRATIVE: CASE EVENT DATE: 20220101
